FAERS Safety Report 5801325-5 (Version None)
Quarter: 2008Q3

REPORT INFORMATION
  Report Type: 
  Country: None (occurrence: None)
  Receive Date: 20080707
  Receipt Date: 20080625
  Transmission Date: 20090109
  Serious: Yes (Other)
  Sender: FDA-Public Use
  Company Number: DE-JNJFOC-20080606554

PATIENT
  Age: 40 Year
  Sex: Female

DRUGS (2)
  1. RISPERDAL [Suspect]
     Route: 048
  2. RISPERDAL [Suspect]
     Indication: DRUG USE FOR UNKNOWN INDICATION
     Dosage: 6-8 WEEKS BEFORE HOSPITALIZATION
     Route: 048

REACTIONS (2)
  - ARRHYTHMIA [None]
  - PSYCHOTIC DISORDER [None]
